FAERS Safety Report 6790523-2 (Version None)
Quarter: 2010Q2

REPORT INFORMATION
  Report Type: 
  Country: None (occurrence: None)
  Receive Date: 20100624
  Receipt Date: 20100616
  Transmission Date: 20101027
  Serious: Yes (Death, Hospitalization)
  Sender: FDA-Public Use
  Company Number: CA-ROCHE-709838

PATIENT
  Sex: Male
  Weight: 86.6 kg

DRUGS (1)
  1. BEVACIZUMAB [Suspect]
     Indication: COLORECTAL CANCER
     Route: 042
     Dates: start: 20100414, end: 20100428

REACTIONS (2)
  - DEATH [None]
  - HEPATIC ENZYME INCREASED [None]
